FAERS Safety Report 6467756-8 (Version None)
Quarter: 2009Q4

REPORT INFORMATION
  Report Type: 
  Country: None (occurrence: None)
  Receive Date: 20091202
  Receipt Date: 20081229
  Transmission Date: 20100525
  Serious: No
  Sender: FDA-Public Use
  Company Number: US-AMGEN-KDL319398

PATIENT
  Sex: Male
  Weight: 76.3 kg

DRUGS (8)
  1. ENBREL [Suspect]
     Indication: PSORIASIS
     Route: 058
     Dates: start: 20060309
  2. CARVEDILOL [Concomitant]
  3. ENALAPRIL MALEATE [Concomitant]
  4. LIPITOR [Concomitant]
  5. METFORMIN HCL [Concomitant]
  6. PLAVIX [Concomitant]
  7. ASPIRIN [Concomitant]
  8. NIASPAN [Concomitant]

REACTIONS (1)
  - TUBERCULIN TEST POSITIVE [None]
